FAERS Safety Report 4408233-5 (Version None)
Quarter: 2004Q3

REPORT INFORMATION
  Report Type: 
  Country: None (occurrence: None)
  Receive Date: 20040726
  Receipt Date: 20040726
  Transmission Date: 20050211
  Serious: Yes (Other)
  Sender: FDA-Public Use
  Company Number: None

PATIENT
  Age: 35 Year
  Sex: Female
  Weight: 61.2356 kg

DRUGS (1)
  1. ZOLOFT [Suspect]
     Indication: OBSESSIVE-COMPULSIVE DISORDER
     Dosage: 200 MG  DAILY  ORAL
     Route: 048
     Dates: start: 20020515, end: 20040721

REACTIONS (7)
  - AGGRESSION [None]
  - DISINHIBITION [None]
  - DRUG WITHDRAWAL SYNDROME [None]
  - IRRITABILITY [None]
  - MOOD SWINGS [None]
  - NERVOUS SYSTEM DISORDER [None]
  - PERSONALITY CHANGE [None]
